FAERS Safety Report 25629399 (Version 1)
Quarter: 2025Q3

REPORT INFORMATION
  Report Type: Spontaneous
  Country: US (occurrence: None)
  Receive Date: 20250731
  Receipt Date: 20250731
  Transmission Date: 20251021
  Serious: Yes (Hospitalization)
  Sender: FDA-CTU
  Company Number: None

PATIENT
  Age: 61 Year
  Sex: Female
  Weight: 61.2 kg

DRUGS (3)
  1. DOXYCYCLINE HYCLATE [Suspect]
     Active Substance: DOXYCYCLINE HYCLATE
     Indication: Infection prophylaxis
     Dosage: 20 CAPSULES TWICE A DAY ORAL
     Route: 048
     Dates: start: 20250711, end: 20250714
  2. VITAMINS [Concomitant]
     Active Substance: VITAMINS
  3. anitbiotic [Concomitant]

REACTIONS (7)
  - Animal scratch [None]
  - Vertigo [None]
  - Vomiting [None]
  - Gait disturbance [None]
  - Eye swelling [None]
  - Blood magnesium decreased [None]
  - Toxicity to various agents [None]

NARRATIVE: CASE EVENT DATE: 20250714
